FAERS Safety Report 20157885 (Version 3)
Quarter: 2022Q2

REPORT INFORMATION
  Report Type: Spontaneous
  Country: JP (occurrence: JP)
  Receive Date: 20211207
  Receipt Date: 20220627
  Transmission Date: 20220721
  Serious: Yes (Death, Other)
  Sender: FDA-Public Use
  Company Number: JP-JAZZ-2021-JP-021283

PATIENT
  Age: 70 Year
  Sex: Male
  Weight: 71.35 kg

DRUGS (2)
  1. DEFITELIO [Suspect]
     Active Substance: DEFIBROTIDE SODIUM
     Indication: Venoocclusive liver disease
     Dosage: 25 MILLIGRAM/KILOGRAM (24 HOURS)
     Route: 042
     Dates: start: 20211109, end: 20211117
  2. NOREPINEPHRINE [Concomitant]
     Active Substance: NOREPINEPHRINE
     Indication: Product used for unknown indication

REACTIONS (3)
  - Venoocclusive liver disease [Fatal]
  - Disease progression [Fatal]
  - Bacteraemia [Fatal]

NARRATIVE: CASE EVENT DATE: 20211101
